FAERS Safety Report 4633200-6 (Version None)
Quarter: 2005Q2

REPORT INFORMATION
  Report Type: 
  Country: None (occurrence: None)
  Receive Date: 20050412
  Receipt Date: 20050412
  Transmission Date: 20051028
  Serious: Yes (Other)
  Sender: FDA-Public Use
  Company Number: None

PATIENT
  Sex: Male

DRUGS (1)
  1. HIBICLENS [Suspect]
     Indication: ANTIBACTERIAL PROPHYLAXIS
     Dosage: TOPICAL ANTISEPTIC
     Route: 061

REACTIONS (2)
  - MEDICATION ERROR [None]
  - VOMITING [None]
